FAERS Safety Report 5799659-6 (Version None)
Quarter: 2008Q3

REPORT INFORMATION
  Report Type: 
  Country: None (occurrence: None)
  Receive Date: 20080702
  Receipt Date: 20080702
  Transmission Date: 20090109
  Serious: Yes (Other)
  Sender: FDA-Public Use
  Company Number: None

PATIENT
  Age: 63 Year
  Sex: Male

DRUGS (1)
  1. DIGOXIN [Suspect]
     Indication: DRUG USE FOR UNKNOWN INDICATION
     Dosage: TAKE 1 TABLET DAILY FROM 12/2007

REACTIONS (4)
  - ASTHENIA [None]
  - CARDIOVASCULAR DISORDER [None]
  - DIZZINESS [None]
  - SYNCOPE [None]
